FAERS Safety Report 21037977 (Version 1)
Quarter: 2022Q3

REPORT INFORMATION
  Report Type: Spontaneous
  Country: NL (occurrence: NL)
  Receive Date: 20220704
  Receipt Date: 20220704
  Transmission Date: 20221027
  Serious: Yes (Other)
  Sender: FDA-Public Use
  Company Number: NL-BRISTOL-MYERS SQUIBB COMPANY-2022-067232

PATIENT
  Age: 9 Decade
  Sex: Male

DRUGS (3)
  1. HYDROXYUREA [Suspect]
     Active Substance: HYDROXYUREA
     Indication: Chronic eosinophilic leukaemia
     Route: 065
  2. IMATINIB [Concomitant]
     Active Substance: IMATINIB
     Indication: Chronic eosinophilic leukaemia
  3. DASATINIB [Concomitant]
     Active Substance: DASATINIB
     Indication: Chronic eosinophilic leukaemia

REACTIONS (1)
  - Pulmonary embolism [Recovered/Resolved]
